FAERS Safety Report 9248998 (Version 2)
Quarter: 2013Q2

REPORT INFORMATION
  Report Type: Spontaneous
  Country: US (occurrence: None)
  Receive Date: 20130305
  Receipt Date: 20130305
  Transmission Date: 20140414
  Serious: Yes (Other)
  Sender: FDA-Public Use
  Company Number: 163-21880-12091044

PATIENT
  Age: 82 Year
  Sex: Female
  Weight: 78.93 kg

DRUGS (5)
  1. REVLIMID [Suspect]
     Indication: PLASMA CELL MYELOMA
     Dosage: 21 IN 28 D
     Route: 048
     Dates: start: 20120810
  2. METHENAMINE MANDELATE (METHENAMINE MANDELATE) [Concomitant]
  3. TRIAMTERENE-HCTZ (DYAZIDE) [Concomitant]
  4. AMLODIPINE BESYLATE-BENAZEPRIL HCL (AMLODIPINE BESYLATE W/BENAZEPRIL HYDROCHLOR.) [Concomitant]
  5. AMBIEN (ZOLPIDEM TARTRATE) [Concomitant]

REACTIONS (9)
  - Hypotension [None]
  - Loss of consciousness [None]
  - Urinary tract infection [None]
  - Abdominal distension [None]
  - Constipation [None]
  - Diarrhoea [None]
  - Back pain [None]
  - Vision blurred [None]
  - Decreased appetite [None]
